FAERS Safety Report 4323381-6 (Version None)
Quarter: 2004Q1

REPORT INFORMATION
  Report Type: 
  Country: None (occurrence: None)
  Receive Date: 20040325
  Receipt Date: 20040315
  Transmission Date: 20041129
  Serious: Yes (Hospitalization)
  Sender: FDA-Public Use
  Company Number: PE-GLAXOSMITHKLINE-A0502913A

PATIENT
  Age: 11 Year
  Sex: Female
  Weight: 40 kg

DRUGS (3)
  1. LAMOTRIGINE [Suspect]
     Indication: EPILEPSY
     Route: 048
     Dates: start: 20040224
  2. VALPROIC ACID [Suspect]
     Indication: EPILEPSY
     Dosage: 500MG TWICE PER DAY
     Route: 048
     Dates: start: 20030725
  3. PHENOBARBITAL TAB [Concomitant]
     Indication: EPILEPSY
     Dosage: 50MG PER DAY
     Route: 048
     Dates: start: 20030725

REACTIONS (5)
  - ATAXIA [None]
  - COMA [None]
  - GASTRITIS [None]
  - OVERDOSE [None]
  - STATUS EPILEPTICUS [None]
